FAERS Safety Report 19313691 (Version 1)
Quarter: 2021Q2

REPORT INFORMATION
  Report Type: Spontaneous
  Country: US (occurrence: US)
  Receive Date: 20210527
  Receipt Date: 20210527
  Transmission Date: 20210717
  Serious: No
  Sender: FDA-Public Use
  Company Number: US-AUROBINDO-AUR-APL-2021-017325

PATIENT
  Age: 39 Year
  Sex: Male

DRUGS (1)
  1. AZELASTINE HYDROCHLORIDE NASAL SPRAY 0.1% (137MCG PER SPRAY) [Suspect]
     Active Substance: AZELASTINE HYDROCHLORIDE
     Indication: UPPER-AIRWAY COUGH SYNDROME
     Dosage: UNK
     Route: 045
     Dates: start: 20210422

REACTIONS (2)
  - Retching [Unknown]
  - Blood pressure increased [Unknown]

NARRATIVE: CASE EVENT DATE: 20210422
